FAERS Safety Report 12158241 (Version 1)
Quarter: 2016Q1

REPORT INFORMATION
  Report Type: Spontaneous
  Country: US (occurrence: None)
  Receive Date: 20160307
  Receipt Date: 20160307
  Transmission Date: 20160526
  Serious: Yes (Other)
  Sender: FDA-Public Use
  Company Number: None

PATIENT
  Age: 36 Year
  Sex: Female
  Weight: 0 kg

DRUGS (1)
  1. HUMIRA [Suspect]
     Active Substance: ADALIMUMAB
     Indication: RHEUMATOID ARTHRITIS
     Dosage: SUBCUTANEOUS 057 40MG INJECTABLE QOW
     Route: 058
     Dates: start: 20140301

REACTIONS (2)
  - Rheumatoid arthritis [None]
  - Therapeutic response unexpected [None]

NARRATIVE: CASE EVENT DATE: 20140301
